FAERS Safety Report 5290053-3 (Version None)
Quarter: 2007Q1

REPORT INFORMATION
  Report Type: 
  Country: None (occurrence: None)
  Receive Date: 20070330
  Receipt Date: 20070319
  Transmission Date: 20070707
  Serious: Yes (Life-Threatening)
  Sender: FDA-Public Use
  Company Number: MC200600933

PATIENT
  Age: 55 Year
  Sex: Male
  Weight: 93 kg

DRUGS (1)
  1. ANGIOMAX [Suspect]
     Dosage: 69 MG, BOLUS, IV BOLUS
     Route: 040
     Dates: start: 20060613, end: 20060613

REACTIONS (3)
  - ANGINA UNSTABLE [None]
  - CORONARY REVASCULARISATION [None]
  - IN-STENT ARTERIAL RESTENOSIS [None]
